FAERS Safety Report 6726163-0 (Version None)
Quarter: 2010Q2

REPORT INFORMATION
  Report Type: 
  Country: None (occurrence: None)
  Receive Date: 20100514
  Receipt Date: 20100506
  Transmission Date: 20101027
  Serious: Yes (Hospitalization, Other)
  Sender: FDA-Public Use
  Company Number: US-B.I. PHARMACEUTICALS,INC./RIDGEFIELD-2010-BP-04414BP

PATIENT
  Age: 69 Year
  Sex: Male
  Weight: 82.6 kg

DRUGS (10)
  1. AGGRENOX [Suspect]
     Indication: CEREBROVASCULAR ACCIDENT PROPHYLAXIS
     Route: 048
     Dates: start: 20080415
  2. BENAZEPRIL HYDROCHLORIDE [Concomitant]
     Route: 048
  3. LANTUS [Concomitant]
     Dosage: 18 U
     Route: 058
  4. VITAMIN B-12 [Concomitant]
     Route: 030
  5. PRAVASTATIN [Concomitant]
  6. TRIAMTERENE AND HYDROCHLOROTHIAZIDE [Concomitant]
  7. AMLODIPINE [Concomitant]
     Dosage: 10 MG
     Route: 048
  8. ZEMPLAR [Concomitant]
  9. VITAMIN D [Concomitant]
     Dosage: 1000 U
  10. NOVOLOG [Concomitant]

REACTIONS (2)
  - BASAL GANGLIA HAEMORRHAGE [None]
  - CEREBROVASCULAR ACCIDENT [None]
